FAERS Safety Report 8026432-0 (Version None)
Quarter: 2012Q1

REPORT INFORMATION
  Report Type: 
  Country: None (occurrence: None)
  Receive Date: 20120105
  Receipt Date: 20111222
  Transmission Date: 20120608
  Serious: Yes (Hospitalization, Other)
  Sender: FDA-Public Use
  Company Number: JP-WATSON-2011-22174

PATIENT
  Age: 78 Year
  Sex: Female

DRUGS (1)
  1. VALACYCLOVIR HYDROCHLORIDE [Suspect]
     Indication: HERPES ZOSTER
     Dosage: 3000 MG DAILY
     Route: 048

REACTIONS (3)
  - NEUROTOXICITY [None]
  - RENAL FAILURE ACUTE [None]
  - DEHYDRATION [None]
